FAERS Safety Report 9207172 (Version 2)
Quarter: 2013Q4

REPORT INFORMATION
  Report Type: Spontaneous
  Country: US (occurrence: US)
  Receive Date: 20130403
  Receipt Date: 20131029
  Transmission Date: 20140711
  Serious: Yes (Hospitalization, Disabling, Other)
  Sender: FDA-Public Use
  Company Number: US-BAYER-2013-039647

PATIENT
  Age: 28 Year
  Sex: Female

DRUGS (4)
  1. YASMIN [Suspect]
     Dosage: UNK
     Dates: start: 200510, end: 200910
  2. OCELLA [Suspect]
     Dosage: UNK
     Dates: start: 200510, end: 200910
  3. REGLAN [Concomitant]
     Dosage: 10 MG, UNK
     Route: 048
  4. PREVACID [Concomitant]

REACTIONS (8)
  - Gallbladder disorder [None]
  - Emotional distress [None]
  - Pain [None]
  - Anhedonia [None]
  - Injury [None]
  - Anxiety [None]
  - Deformity [None]
  - Biliary dyskinesia [None]
